FAERS Safety Report 19878888 (Version 1)
Quarter: 2021Q3

REPORT INFORMATION
  Report Type: Spontaneous
  Country: CN (occurrence: CN)
  Receive Date: 20210924
  Receipt Date: 20210924
  Transmission Date: 20211014
  Serious: Yes (Life-Threatening)
  Sender: FDA-Public Use
  Company Number: CN-ABBVIE-21K-035-4090787-00

PATIENT
  Age: 16 Year
  Sex: Male
  Weight: 40 kg

DRUGS (3)
  1. DEPAKINE CHRONO [Suspect]
     Active Substance: VALPROATE SODIUM
     Indication: MENTAL DISORDER
     Dosage: 0.5MG , BID
     Route: 048
     Dates: start: 20180427, end: 20180524
  2. ZIPRASIDONE HYDROCHLORIDE. [Suspect]
     Active Substance: ZIPRASIDONE HYDROCHLORIDE
     Indication: MENTAL DISORDER
     Dosage: 20MG, BID
     Route: 048
     Dates: start: 20180427, end: 20180524
  3. BENZHEXOL HYDROCHLORIDE [Concomitant]
     Active Substance: TRIHEXYPHENIDYL HYDROCHLORIDE
     Indication: MENTAL DISORDER
     Route: 065

REACTIONS (3)
  - Prothrombin time prolonged [Recovering/Resolving]
  - Haematuria [Recovering/Resolving]
  - Platelet count decreased [Recovering/Resolving]

NARRATIVE: CASE EVENT DATE: 20180524
